FAERS Safety Report 8529026-3 (Version None)
Quarter: 2012Q3

REPORT INFORMATION
  Report Type: 
  Country: None (occurrence: None)
  Receive Date: 20120716
  Receipt Date: 20120716
  Transmission Date: 20120928
  Serious: Yes (Hospitalization)
  Sender: FDA-Public Use
  Company Number: None

PATIENT
  Sex: Female
  Weight: 50.3 kg

DRUGS (3)
  1. FLUDARABINE PHOSPHATE [Suspect]
     Dosage: 126 MG
     Dates: end: 20120516
  2. CYCLOPHOSPHAMIDE [Suspect]
     Dosage: 1275 MG
     Dates: end: 20120516
  3. RITUXIMAB (MOAB C2B8 ANTI CD20, CHIMERIC) [Suspect]
     Dosage: 850 MG
     Dates: end: 20120514

REACTIONS (6)
  - BLOOD ALKALINE PHOSPHATASE INCREASED [None]
  - EPSTEIN-BARR VIRUS TEST POSITIVE [None]
  - NAUSEA [None]
  - PYREXIA [None]
  - ABDOMINAL PAIN [None]
  - VOMITING [None]
